FAERS Safety Report 6560916-7 (Version None)
Quarter: 2010Q1

REPORT INFORMATION
  Report Type: 
  Country: None (occurrence: None)
  Receive Date: 20100129
  Receipt Date: 20090923
  Transmission Date: 20100710
  Serious: No
  Sender: FDA-Public Use
  Company Number: US-ABBOTT-09P-163-0599184-00

PATIENT
  Sex: Female
  Weight: 54.48 kg

DRUGS (4)
  1. HUMIRA [Suspect]
     Indication: CROHN'S DISEASE
     Dates: start: 20090601
  2. HUMIRA [Suspect]
  3. PREDNISONE [Concomitant]
     Indication: CROHN'S DISEASE
     Dosage: 20 MG EVERY OTHER DAY,TAPERING DOSE
  4. PREDNISONE [Concomitant]

REACTIONS (2)
  - DRUG DOSE OMISSION [None]
  - DRUG INEFFECTIVE [None]
